FAERS Safety Report 18844920 (Version 1)
Quarter: 2021Q1

REPORT INFORMATION
  Report Type: Report from Study
  Country: CA (occurrence: CA)
  Receive Date: 20210203
  Receipt Date: 20210203
  Transmission Date: 20210419
  Serious: No
  Sender: FDA-Public Use
  Company Number: CA-EXELIXIS-CABO-20029497

PATIENT
  Sex: Female

DRUGS (1)
  1. CABOMETYX [Suspect]
     Active Substance: CABOZANTINIB S-MALATE
     Indication: RENAL CELL CARCINOMA
     Dosage: 60 MG, QD
     Route: 048
     Dates: start: 20200225, end: 20200415

REACTIONS (10)
  - Somnolence [Unknown]
  - Peripheral swelling [Unknown]
  - Dry skin [Unknown]
  - Prosopagnosia [Unknown]
  - Acne [Unknown]
  - Pruritus [Unknown]
  - Dizziness [Unknown]
  - Contusion [Unknown]
  - Epistaxis [Unknown]
  - Decreased appetite [Unknown]
